FAERS Safety Report 18689396 (Version 1)
Quarter: 2020Q4

REPORT INFORMATION
  Report Type: Spontaneous
  Country: CA (occurrence: CA)
  Receive Date: 20201231
  Receipt Date: 20201231
  Transmission Date: 20210114
  Serious: Yes (Other)
  Sender: FDA-Public Use
  Company Number: CA-SA-2020SA369123

PATIENT

DRUGS (25)
  1. BISOPROLOL [Concomitant]
     Active Substance: BISOPROLOL
     Dosage: 7.5 MG, QD
     Route: 048
  2. GLICLAZIDE [Concomitant]
     Active Substance: GLICLAZIDE
     Dosage: 120 MG, QD
     Route: 048
  3. KEPPRA [Concomitant]
     Active Substance: LEVETIRACETAM
     Indication: SEIZURE
     Dosage: UNK UNK, QD
     Route: 048
  4. TRESIBA [Suspect]
     Active Substance: INSULIN DEGLUDEC
     Dosage: UNK UNK, QD
     Route: 058
  5. ATORVASTATIN CALCIUM. [Concomitant]
     Active Substance: ATORVASTATIN CALCIUM
     Indication: PRODUCT USED FOR UNKNOWN INDICATION
  6. CANDESARTAN. [Concomitant]
     Active Substance: CANDESARTAN
     Indication: HYPERTENSION
     Dosage: UNK
     Route: 048
  7. CLOPIDOGREL BISULFATE. [Suspect]
     Active Substance: CLOPIDOGREL BISULFATE
     Indication: THROMBOSIS
     Dosage: 75 MG, QD
     Route: 048
  8. TRESIBA [Suspect]
     Active Substance: INSULIN DEGLUDEC
     Dosage: UNK UNK, QD
     Route: 048
  9. CONTRAVE [Suspect]
     Active Substance: BUPROPION HYDROCHLORIDE\NALTREXONE HYDROCHLORIDE
     Dosage: UNK, BID
     Route: 048
  10. CONTRAVE [Suspect]
     Active Substance: BUPROPION HYDROCHLORIDE\NALTREXONE HYDROCHLORIDE
     Dosage: 1 DF, QD
     Route: 048
  11. TRESIBA [Suspect]
     Active Substance: INSULIN DEGLUDEC
     Dosage: UNK UNK, QD
     Route: 058
  12. CONTRAVE [Suspect]
     Active Substance: BUPROPION HYDROCHLORIDE\NALTREXONE HYDROCHLORIDE
     Dosage: 2 DF, BID
     Route: 048
  13. CONTRAVE [Suspect]
     Active Substance: BUPROPION HYDROCHLORIDE\NALTREXONE HYDROCHLORIDE
     Indication: WEIGHT CONTROL
     Dosage: 1 DF, BID
     Route: 048
  14. LEVETIRACETAM. [Concomitant]
     Active Substance: LEVETIRACETAM
     Indication: PRODUCT USED FOR UNKNOWN INDICATION
  15. SYNTHROID [Concomitant]
     Active Substance: LEVOTHYROXINE SODIUM
     Indication: PRODUCT USED FOR UNKNOWN INDICATION
     Dosage: 0.112 MG, QD
     Route: 048
  16. TRESIBA [Suspect]
     Active Substance: INSULIN DEGLUDEC
     Indication: DIABETES MELLITUS
     Dosage: UNK UNK, QD
     Route: 058
  17. TRESIBA [Suspect]
     Active Substance: INSULIN DEGLUDEC
     Dosage: UNK UNK, QD
     Route: 058
  18. TRESIBA [Suspect]
     Active Substance: INSULIN DEGLUDEC
     Dosage: UNK UNK, QD
     Route: 058
  19. TRESIBA [Suspect]
     Active Substance: INSULIN DEGLUDEC
     Dosage: UNK UNK, QD
     Route: 058
  20. BISOPROLOL [Concomitant]
     Active Substance: BISOPROLOL
     Indication: HYPERTENSION
     Dosage: 5 MG, QD
     Route: 048
  21. GLICLAZIDE [Concomitant]
     Active Substance: GLICLAZIDE
     Indication: DIABETES MELLITUS
     Dosage: 90 MG, QD
     Route: 048
  22. JARDIANCE [Concomitant]
     Active Substance: EMPAGLIFLOZIN
     Indication: DIABETES MELLITUS
     Dosage: 25 MG, QD
     Route: 048
  23. CONTRAVE [Suspect]
     Active Substance: BUPROPION HYDROCHLORIDE\NALTREXONE HYDROCHLORIDE
     Dosage: 1 DF, BID
     Route: 048
  24. GLICLAZIDE [Concomitant]
     Active Substance: GLICLAZIDE
     Dosage: 120 MG, QD
     Route: 048
  25. METFORMIN HYDROCHLORIDE;SITAGLIPTIN PHOSPHATE MONOHYDRATE [Concomitant]
     Active Substance: METFORMIN HYDROCHLORIDE\SITAGLIPTIN PHOSPHATE
     Indication: DIABETES MELLITUS
     Route: 048

REACTIONS (9)
  - Hyperhidrosis [Not Recovered/Not Resolved]
  - Blood pressure decreased [Not Recovered/Not Resolved]
  - Contraindicated product administered [Unknown]
  - Heart rate increased [Not Recovered/Not Resolved]
  - Stress [Not Recovered/Not Resolved]
  - Blood magnesium decreased [Not Recovered/Not Resolved]
  - Eating disorder [Not Recovered/Not Resolved]
  - Blood glucose increased [Not Recovered/Not Resolved]
  - Blood glucose decreased [Not Recovered/Not Resolved]
